FAERS Safety Report 25051890 (Version 3)
Quarter: 2025Q2

REPORT INFORMATION
  Report Type: Report from Study
  Country: US (occurrence: US)
  Receive Date: 20250307
  Receipt Date: 20250401
  Transmission Date: 20250716
  Serious: Yes (Hospitalization, Other)
  Sender: GILEAD
  Company Number: US-GILEAD-2025-0706472

PATIENT
  Sex: Female

DRUGS (5)
  1. AMBRISENTAN [Suspect]
     Active Substance: AMBRISENTAN
     Indication: Pulmonary arterial hypertension
     Dosage: 10 MG, QD
     Route: 065
     Dates: start: 20220324
  2. ELIQUIS [Concomitant]
     Active Substance: APIXABAN
  3. TADALAFIL [Concomitant]
     Active Substance: TADALAFIL
  4. TREPROSTINIL [Concomitant]
     Active Substance: TREPROSTINIL
  5. WINREVAIR [Concomitant]
     Active Substance: SOTATERCEPT-CSRK

REACTIONS (6)
  - Fluid retention [Unknown]
  - Oxygen saturation decreased [Unknown]
  - Pulmonary arterial hypertension [Unknown]
  - Multiple allergies [Unknown]
  - Ill-defined disorder [Unknown]
  - Dysphonia [Unknown]
